FAERS Safety Report 21527505 (Version 1)
Quarter: 2022Q4

REPORT INFORMATION
  Report Type: Report from Study
  Country: BE (occurrence: None)
  Receive Date: 20221031
  Receipt Date: 20221031
  Transmission Date: 20230113
  Serious: Yes (Life-Threatening)
  Sender: FDA-Public Use
  Company Number: BE-Merck Healthcare KGaA-9361637

PATIENT
  Sex: Male

DRUGS (1)
  1. TEPOTINIB [Suspect]
     Active Substance: TEPOTINIB
     Indication: Product used for unknown indication
     Dates: start: 20210705, end: 20210906

REACTIONS (2)
  - Diabetic hyperosmolar coma [Unknown]
  - Oedema [Unknown]
